FAERS Safety Report 10038057 (Version 1)
Quarter: 2014Q1

REPORT INFORMATION
  Report Type: Spontaneous
  Country: AU (occurrence: None)
  Receive Date: 20140321
  Receipt Date: 20140321
  Transmission Date: 20141002
  Serious: Yes (Other)
  Sender: FDA-Public Use
  Company Number: IPC201403-000130

PATIENT
  Age: 78 Year
  Sex: Female

DRUGS (10)
  1. WARFARIN [Suspect]
  2. AZATHIOPRINE [Suspect]
     Indication: SYSTEMIC LUPUS ERYTHEMATOSUS
  3. THYROXINE [Concomitant]
  4. ATORVASTATIN [Concomitant]
  5. CALCIUM CARBONATE [Concomitant]
  6. OMEPRAZOLE [Concomitant]
  7. CHOLECALCIFEROL [Concomitant]
  8. QUINAPRIL [Concomitant]
  9. PARACETAMOL [Concomitant]
  10. MOVICOL [Concomitant]

REACTIONS (5)
  - Dermatitis exfoliative [None]
  - Eosinophilia [None]
  - Renal failure acute [None]
  - International normalised ratio increased [None]
  - Drug interaction [None]
